FAERS Safety Report 7293882-X (Version None)
Quarter: 2011Q1

REPORT INFORMATION
  Report Type: 
  Country: None (occurrence: None)
  Receive Date: 20110202
  Receipt Date: 20110117
  Transmission Date: 20110831
  Serious: Yes (Death, Other)
  Sender: FDA-Public Use
  Company Number: 010462

PATIENT
  Age: 52 Year
  Sex: Female

DRUGS (1)
  1. SAMSCA [Suspect]
     Dosage: 15 MG, ORAL; 30 MG, ORAL
     Route: 048

REACTIONS (4)
  - SMALL CELL LUNG CANCER STAGE UNSPECIFIED [None]
  - WRONG TECHNIQUE IN DRUG USAGE PROCESS [None]
  - NEOPLASM MALIGNANT [None]
  - POLYDIPSIA [None]
